FAERS Safety Report 9985849 (Version 1)
Quarter: 2014Q1

REPORT INFORMATION
  Report Type: Report from Study
  Country: US (occurrence: US)
  Receive Date: 20140307
  Receipt Date: 20140307
  Transmission Date: 20141002
  Serious: No
  Sender: FDA-Public Use
  Company Number: US-ABBVIE-13P-163-1084912-00

PATIENT
  Sex: Female
  Weight: 59.47 kg

DRUGS (3)
  1. HUMIRA [Suspect]
     Indication: RHEUMATOID ARTHRITIS
     Dates: start: 2000
  2. DILTIAZ ER [Concomitant]
     Indication: PRODUCT USED FOR UNKNOWN INDICATION
  3. TRIAMTERENE-HCTZ [Concomitant]
     Indication: PRODUCT USED FOR UNKNOWN INDICATION

REACTIONS (1)
  - Cataract [Not Recovered/Not Resolved]
